FAERS Safety Report 7288702-3 (Version None)
Quarter: 2011Q1

REPORT INFORMATION
  Report Type: 
  Country: None (occurrence: None)
  Receive Date: 20110208
  Receipt Date: 20110208
  Transmission Date: 20110831
  Serious: Yes (Hospitalization)
  Sender: FDA-Public Use
  Company Number: None

PATIENT
  Age: 18 Year
  Sex: Female

DRUGS (6)
  1. MULTI-VITAMIN [Concomitant]
  2. BUPROPION [Suspect]
     Indication: LIVER INJURY
     Dosage: ER 100-150MG/D
     Dates: start: 20090101, end: 20090330
  3. SEASONIQUE BIRTH CONTROL (LEVONORGESTREL /ETHINYL ESTRADIOL) [Concomitant]
  4. QUETIAPINE [Suspect]
     Indication: LIVER INJURY
     Dosage: INCREASED DOSE TO 300MG/D
     Dates: start: 20090101, end: 20090330
  5. QUETIAPINE [Suspect]
     Indication: LIVER INJURY
     Dosage: INCREASED DOSE TO 300MG/D
     Dates: start: 20080401, end: 20090330
  6. LEVOXYL [Concomitant]

REACTIONS (8)
  - BLOOD BILIRUBIN INCREASED [None]
  - BLOOD ALKALINE PHOSPHATASE INCREASED [None]
  - SOMNOLENCE [None]
  - MALAISE [None]
  - ASPARTATE AMINOTRANSFERASE INCREASED [None]
  - VOMITING [None]
  - INTERNATIONAL NORMALISED RATIO INCREASED [None]
  - ALANINE AMINOTRANSFERASE INCREASED [None]
